APPROVED DRUG PRODUCT: AZITHROMYCIN
Active Ingredient: AZITHROMYCIN
Strength: EQ 600MG BASE
Dosage Form/Route: TABLET;ORAL
Application: A211068 | Product #001 | TE Code: AB
Applicant: YUNG SHIN PHARMACEUTICAL INDUSTRIAL CO LTD
Approved: May 8, 2020 | RLD: No | RS: No | Type: RX